FAERS Safety Report 7302374-0 (Version None)
Quarter: 2011Q1

REPORT INFORMATION
  Report Type: 
  Country: None (occurrence: None)
  Receive Date: 20110218
  Receipt Date: 20110217
  Transmission Date: 20110831
  Serious: Yes (Death, Hospitalization)
  Sender: FDA-Public Use
  Company Number: CZ-PFIZER INC-2009216880

PATIENT
  Age: 79 Year
  Sex: Female
  Weight: 57 kg

DRUGS (5)
  1. ALGIFEN [Concomitant]
     Route: 048
     Dates: start: 20090225
  2. METOCLOPRAMIDE [Concomitant]
     Route: 048
     Dates: start: 20090225
  3. CITALOPRAM [Concomitant]
     Route: 048
     Dates: start: 20090225
  4. SUNITINIB MALATE [Suspect]
     Indication: METASTATIC RENAL CELL CARCINOMA
     Dosage: 50 MG, 1X/DAY
     Route: 048
     Dates: start: 20081210, end: 20090325
  5. ZOLEDRONIC ACID [Concomitant]
     Route: 042
     Dates: start: 20081101

REACTIONS (1)
  - THROMBOCYTOPENIA [None]
